FAERS Safety Report 9154732 (Version 1)
Quarter: 2013Q1

REPORT INFORMATION
  Report Type: Spontaneous
  Country: US (occurrence: US)
  Receive Date: 20130311
  Receipt Date: 20130311
  Transmission Date: 20140127
  Serious: No
  Sender: FDA-Public Use
  Company Number: US-ABBOTT-12P-163-0934328-00

PATIENT
  Age: 57 Year
  Sex: Female

DRUGS (4)
  1. LUPRON DEPOT 11.25 MG [Suspect]
     Indication: HAEMORRHAGE
     Dates: start: 201109
  2. LUPRON DEPOT 11.25 MG [Suspect]
     Indication: UTERINE LEIOMYOMA
  3. AYGESTIN [Concomitant]
     Indication: PRODUCT USED FOR UNKNOWN INDICATION
     Dosage: 5 MG DAILY
     Dates: end: 201204
  4. AYGESTIN [Concomitant]
     Dosage: 10 MG DAILY
     Dates: start: 201204

REACTIONS (3)
  - Metrorrhagia [Unknown]
  - Mood swings [Unknown]
  - Adverse drug reaction [Unknown]
